FAERS Safety Report 9172389 (Version 2)
Quarter: 2013Q2

REPORT INFORMATION
  Report Type: Spontaneous
  Country: US (occurrence: US)
  Receive Date: 20130319
  Receipt Date: 20130510
  Transmission Date: 20140414
  Serious: No
  Sender: FDA-Public Use
  Company Number: US-009507513-1303USA008490

PATIENT
  Age: 51 Year
  Sex: Female
  Weight: 53.52 kg

DRUGS (4)
  1. MIRALAX [Suspect]
     Indication: CONSTIPATION PROPHYLAXIS
     Dosage: 1-2 TSP, UNK
     Route: 048
     Dates: start: 2004
  2. MIRALAX [Suspect]
     Indication: MEDICAL OBSERVATION
  3. FENTANYL [Concomitant]
     Indication: PAIN
     Dosage: UNK, UNKNOWN
     Route: 061
  4. FENTANYL [Concomitant]
     Indication: FIBROMYALGIA

REACTIONS (3)
  - Faeces discoloured [Recovered/Resolved]
  - Underdose [Unknown]
  - Inappropriate schedule of drug administration [Unknown]
